FAERS Safety Report 4487711-7 (Version None)
Quarter: 2004Q4

REPORT INFORMATION
  Report Type: 
  Country: None (occurrence: None)
  Receive Date: 20041025
  Receipt Date: 20041013
  Transmission Date: 20050328
  Serious: Yes (Death)
  Sender: FDA-Public Use
  Company Number: NUBN20040017

PATIENT
  Age: 36 Year
  Sex: Male
  Weight: 101.6057 kg

DRUGS (7)
  1. NUBAIN [Suspect]
     Indication: BACK PAIN
     Dosage: UNK ONCE IM
     Route: 030
     Dates: start: 20040815, end: 20040815
  2. PHENERGAN [Concomitant]
  3. HYDROCODONE BITARTRATE AND ACETAMINOPHEN [Concomitant]
  4. CYCLOBENZAPRINE [Concomitant]
  5. VIOXX [Concomitant]
  6. LORAZEPAM [Concomitant]
  7. BEXTRA [Concomitant]

REACTIONS (12)
  - AUTOIMMUNE THYROIDITIS [None]
  - CARDIOMEGALY [None]
  - COMA [None]
  - CYANOSIS [None]
  - DRUG LEVEL INCREASED [None]
  - GOITRE [None]
  - PANCREATIC DISORDER [None]
  - PANCREATIC HAEMORRHAGE [None]
  - PERICARDIAL EFFUSION [None]
  - PULMONARY CONGESTION [None]
  - PULMONARY HAEMORRHAGE [None]
  - PULMONARY OEDEMA [None]
